FAERS Safety Report 18266216 (Version 1)
Quarter: 2020Q3

REPORT INFORMATION
  Report Type: Spontaneous
  Country: RU (occurrence: RU)
  Receive Date: 20200915
  Receipt Date: 20200915
  Transmission Date: 20201103
  Serious: Yes (Hospitalization)
  Sender: FDA-Public Use
  Company Number: RU-DRREDDYS-RUS/RUS/20/0126721

PATIENT
  Age: 20 Year
  Sex: Male

DRUGS (2)
  1. CIPROLET 500MG TABLETS [Suspect]
     Active Substance: CIPROFLOXACIN
     Indication: PRODUCT USED FOR UNKNOWN INDICATION
     Route: 048
     Dates: start: 20200906, end: 20200906
  2. CEFTRIAXONE POWDER FOR SOLUTION FOR INJECTION 500 MG KRASPHARMA JSC [Suspect]
     Active Substance: CEFTRIAXONE
     Indication: BRONCHITIS
     Route: 030
     Dates: start: 20200906

REACTIONS (3)
  - Palpitations [Recovering/Resolving]
  - Urticaria [Recovering/Resolving]
  - Vision blurred [Recovering/Resolving]

NARRATIVE: CASE EVENT DATE: 20200906
